FAERS Safety Report 4414657-2 (Version None)
Quarter: 2004Q3

REPORT INFORMATION
  Report Type: 
  Country: None (occurrence: None)
  Receive Date: 20040729
  Receipt Date: 20040716
  Transmission Date: 20050211
  Serious: Yes (Death)
  Sender: FDA-Public Use
  Company Number: K200401066

PATIENT

DRUGS (5)
  1. SEPTRA IV INFUSION(TRIMETHOPRIM, SULFAMETHOXAZOLE) INFUSION, 16/80MG/M [Suspect]
     Indication: ENCEPHALITIS
     Dosage: SEE IMAGE
     Route: 042
     Dates: start: 20040523, end: 20040524
  2. SEPTRA IV INFUSION(TRIMETHOPRIM, SULFAMETHOXAZOLE) INFUSION, 16/80MG/M [Suspect]
     Indication: ENCEPHALITIS
     Dosage: SEE IMAGE
     Route: 042
     Dates: start: 20040525, end: 20040525
  3. SEPTRA IV INFUSION(TRIMETHOPRIM, SULFAMETHOXAZOLE) INFUSION, 16/80MG/M [Suspect]
     Indication: ENCEPHALITIS
     Dosage: SEE IMAGE
     Route: 042
     Dates: start: 20040527, end: 20040528
  4. DICLOFENAC (DICLOFENAC) [Concomitant]
  5. PHENOXYMETHYL PENICILLIN [Concomitant]

REACTIONS (6)
  - BONE MARROW DEPRESSION [None]
  - COMA [None]
  - DRUG INEFFECTIVE [None]
  - GENERAL PHYSICAL HEALTH DETERIORATION [None]
  - MEDICATION ERROR [None]
  - OVERDOSE [None]
